FAERS Safety Report 8128473-1 (Version None)
Quarter: 2012Q1

REPORT INFORMATION
  Report Type: 
  Country: None (occurrence: None)
  Receive Date: 20120210
  Receipt Date: 20120131
  Transmission Date: 20120608
  Serious: Yes (Hospitalization)
  Sender: FDA-Public Use
  Company Number: JP-ROCHE-1037926

PATIENT
  Sex: Female

DRUGS (6)
  1. RANIBIZUMAB [Suspect]
     Indication: AGE-RELATED MACULAR DEGENERATION
     Route: 050
     Dates: start: 20090602
  2. RANIBIZUMAB [Suspect]
     Dates: start: 20090804
  3. RANIBIZUMAB [Suspect]
     Dates: start: 20100112
  4. VISUDYNE [Concomitant]
  5. MOXIFLOXACIN HYDROCHLORIDE [Concomitant]
  6. RANIBIZUMAB [Suspect]
     Dates: start: 20090701

REACTIONS (1)
  - ASTHENIA [None]
